FAERS Safety Report 26135325 (Version 1)
Quarter: 2025Q4

REPORT INFORMATION
  Report Type: Spontaneous
  Country: US (occurrence: US)
  Receive Date: 20251209
  Receipt Date: 20251209
  Transmission Date: 20260117
  Serious: No
  Sender: NOVEN
  Company Number: US-NOVEN PHARMACEUTICALS, INC.-2025-NOV-US000827

PATIENT
  Age: 46 Year
  Sex: Female

DRUGS (1)
  1. ESTRADIOL [Suspect]
     Active Substance: ESTRADIOL
     Indication: Product used for unknown indication
     Dosage: 0.05 MG, UNKNOWN
     Route: 062
     Dates: start: 202504

REACTIONS (7)
  - Vaginal haemorrhage [Not Recovered/Not Resolved]
  - Dermal absorption impaired [Not Recovered/Not Resolved]
  - Product administration error [Not Recovered/Not Resolved]
  - Device difficult to use [Not Recovered/Not Resolved]
  - Product design issue [Not Recovered/Not Resolved]
  - Device physical property issue [Not Recovered/Not Resolved]
  - Product quality issue [Not Recovered/Not Resolved]

NARRATIVE: CASE EVENT DATE: 20250401
